FAERS Safety Report 14633184 (Version 4)
Quarter: 2018Q3

REPORT INFORMATION
  Report Type: Report from Study
  Country: US (occurrence: US)
  Receive Date: 20180313
  Receipt Date: 20180720
  Transmission Date: 20181010
  Serious: Yes (Hospitalization)
  Sender: FDA-Public Use
  Company Number: US-SEATTLE GENETICS-2018SGN00473

PATIENT
  Age: 31 Year
  Sex: Male

DRUGS (7)
  1. BRENTUXIMAB VEDOTIN [Suspect]
     Active Substance: BRENTUXIMAB VEDOTIN
     Indication: PLEURAL MESOTHELIOMA MALIGNANT
     Dosage: 2.4 MG/KG, QCYCLE
     Route: 042
     Dates: start: 20180221, end: 20180221
  2. ABH [Concomitant]
     Indication: VOMITING
  3. ZOFRAN [Concomitant]
     Active Substance: ONDANSETRON HYDROCHLORIDE
     Dosage: 8 MG, Q8HR
     Route: 048
  4. MULTIVITAMIN                       /00097801/ [Concomitant]
     Active Substance: VITAMINS
     Dosage: UNK
     Dates: start: 20161202
  5. GUAIFENESIN. [Concomitant]
     Active Substance: GUAIFENESIN
     Indication: COUGH
     Dosage: 600 MG, UNK
     Dates: start: 20170623
  6. COMPAZINE                          /00013302/ [Concomitant]
     Active Substance: PROCHLORPERAZINE EDISYLATE
     Indication: NAUSEA
     Dosage: 10 MG, Q6HR
     Route: 048
  7. ABH [Concomitant]
     Indication: NAUSEA
     Dosage: UNK
     Dates: start: 20170331

REACTIONS (5)
  - Tachycardia [Recovered/Resolved]
  - Abdominal pain [Recovered/Resolved]
  - Melaena [Recovered/Resolved]
  - Pyrexia [Recovered/Resolved with Sequelae]
  - Hypokalaemia [Recovered/Resolved]

NARRATIVE: CASE EVENT DATE: 20180222
